FAERS Safety Report 8807383 (Version 1)
Quarter: 2012Q4

REPORT INFORMATION
  Report Type: 
  Country: MG (occurrence: MG)
  Receive Date: 20120925
  Receipt Date: 20120925
  Transmission Date: 20130627
  Serious: Yes (Death, Other)
  Sender: FDA-Public Use
  Company Number: PHHY2005MG007700

PATIENT
  Sex: Female

DRUGS (1)
  1. GLIVEC [Suspect]
     Dosage: UNK
     Dates: start: 20050726

REACTIONS (2)
  - Death [Fatal]
  - Full blood count decreased [Unknown]
